FAERS Safety Report 13230667 (Version 1)
Quarter: 2017Q1

REPORT INFORMATION
  Report Type: Spontaneous
  Country: US (occurrence: US)
  Receive Date: 20170214
  Receipt Date: 20170214
  Transmission Date: 20170428
  Serious: No
  Sender: FDA-Public Use
  Company Number: US-BAUSCH-BL-2016-024390

PATIENT
  Sex: Female

DRUGS (1)
  1. DILTIAZEM HCL ER CAPSULES [Suspect]
     Active Substance: DILTIAZEM HYDROCHLORIDE
     Indication: HEART RATE INCREASED
     Dosage: AT NIGHT
     Route: 048

REACTIONS (1)
  - Balance disorder [Not Recovered/Not Resolved]
